FAERS Safety Report 4888322-1 (Version None)
Quarter: 2006Q1

REPORT INFORMATION
  Report Type: 
  Country: None (occurrence: None)
  Receive Date: 20060123
  Receipt Date: 20060109
  Transmission Date: 20060701
  Serious: Yes (Life-Threatening)
  Sender: FDA-Public Use
  Company Number: B0406181A

PATIENT
  Age: 84 Year
  Sex: Female
  Weight: 130 kg

DRUGS (12)
  1. DEROXAT [Suspect]
     Dosage: 20MG PER DAY
     Route: 048
  2. ATARAX [Suspect]
     Dosage: 1TAB PER DAY
     Route: 048
  3. RIVOTRIL [Suspect]
     Route: 048
  4. EFFERALGAN CODEINE [Suspect]
     Dosage: 8TAB PER DAY
     Route: 048
  5. ZYLORIC [Concomitant]
     Dosage: 300MG PER DAY
     Route: 048
  6. PREVISCAN [Concomitant]
     Dosage: 30MG PER DAY
     Route: 048
  7. HYPERIUM [Concomitant]
     Dosage: 1TAB PER DAY
  8. ZESTRIL [Concomitant]
     Dosage: 20MG PER DAY
     Route: 048
  9. ALDACTONE [Concomitant]
     Dosage: 25MG PER DAY
     Route: 048
  10. LASILIX [Concomitant]
     Dosage: 250MG UNKNOWN
     Route: 048
  11. EUPRESSYL [Concomitant]
     Dosage: 60MG UNKNOWN
     Route: 048
  12. CORDARONE [Concomitant]
     Route: 048

REACTIONS (8)
  - COMA [None]
  - DEPRESSED LEVEL OF CONSCIOUSNESS [None]
  - INTERNATIONAL NORMALISED RATIO INCREASED [None]
  - LEUKOCYTOSIS [None]
  - LEUKOCYTURIA [None]
  - MIOSIS [None]
  - PROTHROMBIN TIME RATIO DECREASED [None]
  - RESPIRATORY ACIDOSIS [None]
